FAERS Safety Report 5315920-3 (Version None)
Quarter: 2007Q2

REPORT INFORMATION
  Report Type: 
  Country: None (occurrence: None)
  Receive Date: 20070503
  Receipt Date: 20070423
  Transmission Date: 20071010
  Serious: Yes (Other)
  Sender: FDA-Public Use
  Company Number: JP-PFIZER INC-2007032713

PATIENT
  Age: 70 Year
  Sex: Male

DRUGS (2)
  1. NORVASC [Suspect]
     Indication: HYPERTENSION
     Dosage: DAILY DOSE:5MG-FREQ:DAILY
     Route: 048
  2. OLMETEC [Concomitant]
     Dosage: DAILY DOSE:20MG-FREQ:DAILY
     Route: 048

REACTIONS (1)
  - HYPERTENSION [None]
